FAERS Safety Report 5005941-2 (Version None)
Quarter: 2006Q2

REPORT INFORMATION
  Report Type: 
  Country: None (occurrence: None)
  Receive Date: 20060517
  Receipt Date: 20060517
  Transmission Date: 20061013
  Serious: Yes (Hospitalization)
  Sender: FDA-Public Use
  Company Number: None

PATIENT
  Sex: Male

DRUGS (13)
  1. WARFARIN SODIUM [Suspect]
     Indication: AORTIC VALVE REPLACEMENT
     Dosage: 5MG, MON, WED/7.5 MG DAILY PO
     Route: 048
  2. DEXAMETHASONE TAB [Concomitant]
  3. FUROSEMIDE [Concomitant]
  4. INSULIN [Concomitant]
  5. IPRATROPIUM BROMIDE [Concomitant]
  6. LEVOTHYROXINE SODIUM [Concomitant]
  7. LORATADINE [Concomitant]
  8. METOPROLOL TARTRATE [Concomitant]
  9. MORPHINE [Concomitant]
  10. OMEPRAZOLE [Concomitant]
  11. OXYCODONE [Concomitant]
  12. SIMVASTATIN [Concomitant]
  13. VALSARTAN [Concomitant]

REACTIONS (4)
  - ASTHENIA [None]
  - CHEST PAIN [None]
  - HAEMATEMESIS [None]
  - PROTHROMBIN TIME PROLONGED [None]
